FAERS Safety Report 6863360-8 (Version None)
Quarter: 2010Q3

REPORT INFORMATION
  Report Type: 
  Country: None (occurrence: None)
  Receive Date: 20100721
  Receipt Date: 20100709
  Transmission Date: 20110219
  Serious: Yes (Hospitalization)
  Sender: FDA-Public Use
  Company Number: DE-ELI_LILLY_AND_COMPANY-DE201007002789

PATIENT
  Age: 61 Year
  Sex: Male
  Weight: 71.5 kg

DRUGS (2)
  1. GEMCITABINE HCL [Suspect]
     Indication: PANCREATIC CARCINOMA
     Dosage: 1000 MG/M2, WEEKLY (1/W)
     Route: 042
     Dates: start: 20100519, end: 20100609
  2. SUNITINIB MALATE [Suspect]
     Indication: PANCREATIC CARCINOMA
     Dosage: 50 MG, DAILY (1/D)
     Route: 048
     Dates: start: 20100519, end: 20100613

REACTIONS (1)
  - NEUTROPENIC SEPSIS [None]
